FAERS Safety Report 6310446-2 (Version None)
Quarter: 2009Q3

REPORT INFORMATION
  Report Type: 
  Country: None (occurrence: None)
  Receive Date: 20090814
  Receipt Date: 20090805
  Transmission Date: 20100115
  Serious: Yes (Other)
  Sender: FDA-Public Use
  Company Number: JP-PFIZER INC-2009250822

PATIENT
  Age: 85 Year

DRUGS (3)
  1. ADRIACIN [Suspect]
     Indication: HEPATIC NEOPLASM MALIGNANT
     Dosage: UNK
     Route: 013
     Dates: start: 20041001
  2. MITOMYCIN [Suspect]
     Indication: HEPATIC NEOPLASM MALIGNANT
     Dosage: UNK
     Route: 013
     Dates: start: 20041001
  3. LIPIODOL ULTRA-FLUID [Suspect]
     Indication: HEPATIC NEOPLASM MALIGNANT
     Dosage: UNK
     Route: 013
     Dates: start: 20041001

REACTIONS (1)
  - LIVER ABSCESS [None]
